FAERS Safety Report 25607371 (Version 1)
Quarter: 2025Q3

REPORT INFORMATION
  Report Type: Spontaneous
  Country: AR (occurrence: AR)
  Receive Date: 20250725
  Receipt Date: 20250725
  Transmission Date: 20251021
  Serious: Yes (Hospitalization)
  Sender: SANDOZ
  Company Number: AR-002147023-NVSC2025AR111087

PATIENT
  Age: 51 Year
  Sex: Female

DRUGS (3)
  1. COSENTYX [Suspect]
     Active Substance: SECUKINUMAB
     Route: 058
     Dates: start: 202504, end: 202504
  2. COSENTYX [Suspect]
     Active Substance: SECUKINUMAB
     Indication: Psoriasis
     Route: 065
     Dates: start: 202503, end: 202504
  3. METHOTREXATE [Suspect]
     Active Substance: METHOTREXATE
     Indication: Product used for unknown indication
     Route: 065

REACTIONS (5)
  - Dermatitis exfoliative generalised [Recovering/Resolving]
  - Mucosal exfoliation [Unknown]
  - Arthritis [Unknown]
  - Skin exfoliation [Unknown]
  - Urticaria [Unknown]

NARRATIVE: CASE EVENT DATE: 20250415
